FAERS Safety Report 4675254-7 (Version None)
Quarter: 2005Q2

REPORT INFORMATION
  Report Type: 
  Country: None (occurrence: None)
  Receive Date: 20050527
  Receipt Date: 20050426
  Transmission Date: 20051028
  Serious: Yes (Other)
  Sender: FDA-Public Use
  Company Number: PHNR2005AU00817

PATIENT
  Age: 65 Year
  Sex: Female

DRUGS (4)
  1. EXEMESTANE [Concomitant]
  2. AREDIA [Suspect]
     Dosage: UNK, UNK
     Dates: start: 20011201, end: 20031101
  3. ENDOCRINE THERAPY [Concomitant]
  4. ZOMETA [Suspect]
     Indication: METASTASES TO BONE
     Dosage: 4 MG, QMO
     Dates: start: 20040101, end: 20050503

REACTIONS (3)
  - ASEPTIC NECROSIS BONE [None]
  - OSTEONECROSIS [None]
  - TOOTH ABSCESS [None]
